FAERS Safety Report 9562196 (Version 1)
Quarter: 2013Q3

REPORT INFORMATION
  Report Type: Spontaneous
  Country: US (occurrence: US)
  Receive Date: 20130927
  Receipt Date: 20130927
  Transmission Date: 20140515
  Serious: Yes (Other)
  Sender: FDA-Public Use
  Company Number: US-FRI-1000049127

PATIENT
  Sex: Female

DRUGS (1)
  1. BYSTOLIC [Suspect]
     Route: 048
     Dates: start: 201305

REACTIONS (2)
  - Blood glucose increased [Unknown]
  - Haematochezia [Unknown]
